FAERS Safety Report 4424389-2 (Version None)
Quarter: 2004Q3

REPORT INFORMATION
  Report Type: 
  Country: None (occurrence: None)
  Receive Date: 20040812
  Receipt Date: 20040804
  Transmission Date: 20050211
  Serious: Yes (Other)
  Sender: FDA-Public Use
  Company Number: US-BRISTOL-MYERS SQUIBB COMPANY-12661575

PATIENT
  Age: 45 Year
  Sex: Male
  Weight: 114 kg

DRUGS (9)
  1. IFEX [Suspect]
     Indication: TESTIS CANCER
     Route: 042
     Dates: start: 20040803, end: 20040803
  2. DEXAMETHASONE [Concomitant]
     Indication: PREMEDICATION
  3. GRANISETRON [Concomitant]
     Indication: PREMEDICATION
  4. PERCOCET [Concomitant]
  5. NEURONTIN [Concomitant]
  6. MAGNESIUM [Concomitant]
  7. COUMADIN [Concomitant]
  8. LISINOPRIL [Concomitant]
  9. INSULIN [Concomitant]
     Indication: DIABETES MELLITUS

REACTIONS (3)
  - BALANCE DISORDER [None]
  - HICCUPS [None]
  - HYPERHIDROSIS [None]
